FAERS Safety Report 20163667 (Version 2)
Quarter: 2022Q1

REPORT INFORMATION
  Report Type: Spontaneous
  Country: US (occurrence: US)
  Receive Date: 20211209
  Receipt Date: 20220119
  Transmission Date: 20220424
  Serious: Yes (Other)
  Sender: FDA-Public Use
  Company Number: US-GLAXOSMITHKLINE-US2021247584

PATIENT
  Age: 37 Year
  Sex: Female
  Weight: 70.9 kg

DRUGS (2)
  1. ZEJULA [Suspect]
     Active Substance: NIRAPARIB
     Indication: Ovarian cancer
     Dosage: 200 MG, QD
     Route: 048
     Dates: start: 20211101
  2. ZEJULA [Suspect]
     Active Substance: NIRAPARIB
     Dosage: 100 MG, QD (QHS)
     Route: 048
     Dates: start: 202111, end: 20211130

REACTIONS (5)
  - Neutropenia [Recovered/Resolved]
  - Nausea [Recovering/Resolving]
  - Constipation [Unknown]
  - Full blood count decreased [Unknown]
  - Drug monitoring procedure not performed [Unknown]

NARRATIVE: CASE EVENT DATE: 20211101
